FAERS Safety Report 23964291 (Version 1)
Quarter: 2024Q2

REPORT INFORMATION
  Report Type: Report from Study
  Country: US (occurrence: US)
  Receive Date: 20240611
  Receipt Date: 20240611
  Transmission Date: 20240715
  Serious: Yes (Other)
  Sender: FDA-Public Use
  Company Number: US-ABBVIE-5790752

PATIENT
  Sex: Male

DRUGS (1)
  1. RINVOQ [Suspect]
     Active Substance: UPADACITINIB
     Indication: Psoriatic arthropathy
     Route: 048
     Dates: start: 20230930

REACTIONS (5)
  - Surgery [Recovering/Resolving]
  - Myalgia [Unknown]
  - Groin pain [Unknown]
  - Muscle spasms [Unknown]
  - Impaired healing [Unknown]
